FAERS Safety Report 24996689 (Version 1)
Quarter: 2025Q1

REPORT INFORMATION
  Report Type: Spontaneous
  Country: JP (occurrence: JP)
  Receive Date: 20250221
  Receipt Date: 20250221
  Transmission Date: 20250409
  Serious: Yes (Other)
  Sender: MERCK SHARP & DOHME LLC
  Company Number: JP-ONO-2024JP019144

PATIENT
  Age: 81 Year
  Sex: Male
  Weight: 66.1 kg

DRUGS (7)
  1. SITAGLIPTIN [Suspect]
     Active Substance: SITAGLIPTIN
     Indication: Type 2 diabetes mellitus
     Dosage: DOSE DESCRIPTION : 50 MG, EVERYDAY;?DAILY DOSE : 50 MILLIGRAM
     Route: 048
  2. DAPAGLIFLOZIN [Suspect]
     Active Substance: DAPAGLIFLOZIN
     Indication: Type 2 diabetes mellitus
     Dosage: DOSE DESCRIPTION : 10 MG, EVERYDAY?DAILY DOSE : 10 MILLIGRAM?REGIMEN DOSE : 1630  MILLIGRAM
     Route: 048
     Dates: start: 20240315, end: 20240824
  3. CARVEDILOL [Concomitant]
     Active Substance: CARVEDILOL
     Dosage: DOSE DESCRIPTION : 5 MG, EVERYDAY?DAILY DOSE : 5 MILLIGRAM
     Route: 048
  4. AZILSARTAN KAMEDOXOMIL [Concomitant]
     Active Substance: AZILSARTAN KAMEDOXOMIL
     Dosage: DOSE DESCRIPTION : 20 MG, EVERYDAY?DAILY DOSE : 20 MILLIGRAM
     Route: 048
  5. LIVALO [Concomitant]
     Active Substance: PITAVASTATIN CALCIUM
     Dosage: DOSE DESCRIPTION : 1 MG, EVERYDAY?DAILY DOSE : 1 MILLIGRAM
     Route: 048
  6. AMLODIPINE BESYLATE [Concomitant]
     Active Substance: AMLODIPINE BESYLATE
     Dosage: DOSE DESCRIPTION : 10 MG, EVERYDAY?DAILY DOSE : 10 MILLIGRAM
     Route: 048
  7. CANAGLIFLOZIN [Suspect]
     Active Substance: CANAGLIFLOZIN
     Route: 048

REACTIONS (2)
  - Diabetes mellitus inadequate control [Unknown]
  - Blood potassium decreased [Recovered/Resolved]

NARRATIVE: CASE EVENT DATE: 20240823
